FAERS Safety Report 9506445 (Version 1)
Quarter: 2013Q1

REPORT INFORMATION
  Report Type: Spontaneous
  Country: US (occurrence: None)
  Receive Date: 20130305
  Receipt Date: 20130305
  Transmission Date: 20140127
  Serious: Yes (Other)
  Sender: FDA-Public Use
  Company Number: 163-21880-12030352

PATIENT
  Age: 71 Year
  Sex: Female

DRUGS (2)
  1. REVLIMID [Suspect]
     Indication: PLASMA CELL MYELOMA
     Dosage: D X 21 REPEAT Q28
     Route: 048
     Dates: start: 20110325
  2. ASA (ACETYLSALICYLIC ACID) (CAPSULES) [Concomitant]

REACTIONS (1)
  - Deep vein thrombosis [None]
